FAERS Safety Report 16570601 (Version 1)
Quarter: 2019Q3

REPORT INFORMATION
  Report Type: Spontaneous
  Country: JP (occurrence: JP)
  Receive Date: 20190715
  Receipt Date: 20190715
  Transmission Date: 20191004
  Serious: No
  Sender: FDA-Public Use
  Company Number: JP-LUPIN PHARMACEUTICALS INC.-2019-02210

PATIENT
  Age: 68 Year
  Sex: Male

DRUGS (1)
  1. BIMATOPROST. [Suspect]
     Active Substance: BIMATOPROST
     Indication: GLAUCOMA
     Dosage: UNK (RIGHT EYE)
     Route: 047

REACTIONS (2)
  - Fat tissue decreased [Unknown]
  - Enophthalmos [Unknown]
